FAERS Safety Report 9683503 (Version 1)
Quarter: 2013Q4

REPORT INFORMATION
  Report Type: Spontaneous
  Country: FR (occurrence: FR)
  Receive Date: 20131112
  Receipt Date: 20131112
  Transmission Date: 20140711
  Serious: Yes (Hospitalization, Other)
  Sender: FDA-Public Use
  Company Number: FR-009507513-1311FRA001075

PATIENT
  Age: 59 Year
  Sex: Male

DRUGS (9)
  1. JANUMET [Suspect]
     Dosage: 1 DF, BID
     Route: 048
     Dates: start: 20121120, end: 20130809
  2. EZETROL [Suspect]
     Dosage: 10 MG, QD
     Route: 048
     Dates: start: 2011, end: 20130809
  3. DIAMICRON [Concomitant]
     Dosage: 30 MG, QAM
     Dates: end: 20130819
  4. TRIATEC (RAMIPRIL) [Concomitant]
     Dosage: 2.5 MG, QD
     Route: 048
     Dates: end: 20130819
  5. COKENZEN [Concomitant]
     Dosage: 1 DF, QD
     Route: 048
     Dates: end: 20130819
  6. DISCOTRINE [Concomitant]
     Dosage: 15 MG, QD
     Route: 062
  7. KARDEGIC [Concomitant]
     Dosage: 160 MG, QD
     Route: 048
  8. INEXIUM [Concomitant]
     Dosage: 20 MG, QD
  9. PROCORALAN [Concomitant]
     Dosage: 5 MG, BID
     Route: 048

REACTIONS (2)
  - Hepatitis [Recovered/Resolved]
  - Pancreatitis acute [Recovered/Resolved]
